FAERS Safety Report 16059532 (Version 1)
Quarter: 2019Q1

REPORT INFORMATION
  Report Type: Other
  Country: CN (occurrence: CN)
  Receive Date: 20190311
  Receipt Date: 20190311
  Transmission Date: 20190418
  Serious: Yes (Other)
  Sender: FDA-Public Use
  Company Number: CN-GE HEALTHCARE LIFE SCIENCES-2019CSU001430

PATIENT

DRUGS (2)
  1. OMNIPAQUE [Suspect]
     Active Substance: IOHEXOL
     Indication: VENTILATION/PERFUSION SCAN
     Dosage: 70 ML, AT 3 ML/SEC
     Route: 040
     Dates: start: 20190111, end: 20190111
  2. OMNIPAQUE [Suspect]
     Active Substance: IOHEXOL
     Indication: PLEURAL EFFUSION

REACTIONS (8)
  - Palpitations [Recovering/Resolving]
  - Blood pressure increased [Recovering/Resolving]
  - Laryngeal disorder [Recovering/Resolving]
  - Muscular weakness [Recovering/Resolving]
  - Cough [Recovering/Resolving]
  - Flushing [Recovering/Resolving]
  - Rash [Recovering/Resolving]
  - Throat irritation [Recovering/Resolving]

NARRATIVE: CASE EVENT DATE: 20190111
